FAERS Safety Report 4378761-X (Version None)
Quarter: 2004Q2

REPORT INFORMATION
  Report Type: 
  Country: None (occurrence: None)
  Receive Date: 20040609
  Receipt Date: 20040525
  Transmission Date: 20050107
  Serious: Yes (Other)
  Sender: FDA-Public Use
  Company Number: USA030125376

PATIENT
  Sex: Female

DRUGS (16)
  1. FORTEO [Suspect]
     Indication: OSTEOPOROSIS
     Dosage: 20 UG/DAY
     Dates: start: 20021201
  2. AGRYLIN [Concomitant]
  3. AMITRIPTYLINE HCL [Concomitant]
  4. SYNTHROID [Concomitant]
  5. TIMOPTIC [Concomitant]
  6. VIOXX [Concomitant]
  7. AXID [Concomitant]
  8. PROTONIX [Concomitant]
  9. HYDROXYUREA [Concomitant]
  10. PILOCARPINE [Concomitant]
  11. ALPHAGAN [Concomitant]
  12. MULTIVITAMIN [Concomitant]
  13. CITRACAL + D [Concomitant]
  14. VITAMIN E [Concomitant]
  15. VITAMIN C [Concomitant]
  16. GLUCOSAMINE [Concomitant]

REACTIONS (3)
  - GLAUCOMA [None]
  - HEADACHE [None]
  - OPTIC NERVE INJURY [None]
